FAERS Safety Report 23551458 (Version 2)
Quarter: 2024Q2

REPORT INFORMATION
  Report Type: Spontaneous
  Country: US (occurrence: None)
  Receive Date: 20240222
  Receipt Date: 20240405
  Transmission Date: 20240716
  Serious: Yes (Other)
  Sender: FDA-Public Use
  Company Number: US-ROCHE-3511444

PATIENT
  Age: 71 Year
  Sex: Male

DRUGS (5)
  1. CELLCEPT [Suspect]
     Active Substance: MYCOPHENOLATE MOFETIL
     Indication: Product used for unknown indication
     Dosage: IN MORNING, UNKNOWN
     Route: 065
  2. KRYSTEXXA [Suspect]
     Active Substance: PEGLOTICASE
     Indication: Product used for unknown indication
     Route: 042
     Dates: start: 20230704
  3. KRYSTEXXA [Suspect]
     Active Substance: PEGLOTICASE
     Route: 042
     Dates: start: 20240208
  4. COLCHICINE [Concomitant]
     Active Substance: COLCHICINE
  5. LASIX [Concomitant]
     Active Substance: FUROSEMIDE

REACTIONS (8)
  - Renal failure [Not Recovered/Not Resolved]
  - Blood pressure increased [Recovered/Resolved]
  - Blood glucose increased [Not Recovered/Not Resolved]
  - Skin disorder [Not Recovered/Not Resolved]
  - Nephrolithiasis [Not Recovered/Not Resolved]
  - Fluid retention [Not Recovered/Not Resolved]
  - Injection site bruising [Not Recovered/Not Resolved]
  - Urinary tract infection [Recovering/Resolving]

NARRATIVE: CASE EVENT DATE: 20240118
